FAERS Safety Report 7628724-3 (Version None)
Quarter: 2011Q3

REPORT INFORMATION
  Report Type: 
  Country: None (occurrence: None)
  Receive Date: 20110714
  Receipt Date: 20110708
  Transmission Date: 20111222
  Serious: Yes (Hospitalization)
  Sender: FDA-Public Use
  Company Number: 2011SP016938

PATIENT
  Age: 47 Year
  Sex: Male
  Weight: 106 kg

DRUGS (2)
  1. REBETOL [Suspect]
     Indication: HEPATITIS C
     Dosage: 600 MG, BID, PO
     Route: 048
     Dates: start: 20100516, end: 20110320
  2. VIRAFERONPEG [Suspect]
     Indication: HEPATITIS C
     Dosage: 150 MCG, QW, SC
     Route: 058
     Dates: start: 20100516, end: 20110320

REACTIONS (4)
  - COUGH [None]
  - FATIGUE [None]
  - LUNG DISORDER [None]
  - PYREXIA [None]
